FAERS Safety Report 4503338-2 (Version None)
Quarter: 2004Q4

REPORT INFORMATION
  Report Type: 
  Country: None (occurrence: None)
  Receive Date: 20041112
  Receipt Date: 20041109
  Transmission Date: 20050328
  Serious: No
  Sender: FDA-Public Use
  Company Number: TAP2004Q01126

PATIENT
  Age: 74 Year
  Sex: Female

DRUGS (7)
  1. PREVACID [Suspect]
     Indication: DRUG USE FOR UNKNOWN INDICATION
     Dosage: 30 MG, 1 IN 1 D, PER ORAL
     Route: 048
     Dates: start: 20040812
  2. HYZAAR [Concomitant]
  3. ALLOPURINOL [Concomitant]
  4. FOSAMAX [Concomitant]
  5. UNSPECIFIED ^CHOLESTEROL^ MEDICATION (CHOLESTEROL- AND TRIGLYCERIDE RE [Concomitant]
  6. TUMS (CALCIUM CARBONATE) [Concomitant]
  7. EXCEDRIN (THOMAPYRIN N) [Concomitant]

REACTIONS (5)
  - ABNORMAL SENSATION IN EYE [None]
  - CORNEAL ABRASION [None]
  - EYE REDNESS [None]
  - PHOTOSENSITIVITY REACTION [None]
  - TREATMENT NONCOMPLIANCE [None]
